FAERS Safety Report 9247029 (Version 1)
Quarter: 2013Q2

REPORT INFORMATION
  Report Type: Spontaneous
  Country: US (occurrence: US)
  Receive Date: 20130423
  Receipt Date: 20130423
  Transmission Date: 20140414
  Serious: Yes (Hospitalization, Other)
  Sender: FDA-Public Use
  Company Number: US-AMGEN-USASP2013026603

PATIENT
  Age: 54 Year
  Sex: Female

DRUGS (1)
  1. ENBREL [Suspect]
     Indication: RHEUMATOID ARTHRITIS
     Dosage: 50 MG, QWK
     Dates: start: 20000201

REACTIONS (9)
  - Skin flap necrosis [Unknown]
  - Joint arthroplasty [Unknown]
  - Staphylococcal infection [Unknown]
  - Knee arthroplasty [Unknown]
  - Tendon disorder [Recovered/Resolved]
  - Arthropathy [Not Recovered/Not Resolved]
  - Swelling [Unknown]
  - Joint warmth [Unknown]
  - Pain [Unknown]
